FAERS Safety Report 5643262-5 (Version None)
Quarter: 2008Q1

REPORT INFORMATION
  Report Type: 
  Country: None (occurrence: None)
  Receive Date: 20080228
  Receipt Date: 20080219
  Transmission Date: 20080703
  Serious: Yes (Hospitalization, Other)
  Sender: FDA-Public Use
  Company Number: US-WYE-H02671708

PATIENT
  Sex: Male
  Weight: 63.11 kg

DRUGS (9)
  1. TORISEL [Suspect]
     Indication: RENAL CELL CARCINOMA
     Dosage: 25 MG (FREQUENCY NOT SPECIFIED)
     Route: 042
     Dates: start: 20080211, end: 20080211
  2. TORISEL [Suspect]
     Dosage: DID NOT SPECIFY
     Route: 042
     Dates: start: 20080220
  3. HYDROCHLOROTHIAZIDE [Concomitant]
     Dosage: 25 MG
  4. SENOKOT [Concomitant]
  5. ATIVAN [Concomitant]
     Dosage: 1 MG AS NEEDED
  6. PRAVACHOL [Concomitant]
     Dosage: 10 MG
  7. COMPAZINE [Concomitant]
     Dosage: AS NEEDED
  8. LISINOPRIL [Suspect]
     Dosage: 10 MG
  9. VICODIN [Concomitant]
     Dosage: 5/500

REACTIONS (6)
  - ANGIOEDEMA [None]
  - DIZZINESS [None]
  - DYSARTHRIA [None]
  - HEADACHE [None]
  - HYPOAESTHESIA ORAL [None]
  - PAIN [None]
